FAERS Safety Report 15384609 (Version 1)
Quarter: 2018Q3

REPORT INFORMATION
  Report Type: Spontaneous
  Country: US (occurrence: US)
  Receive Date: 20180907
  Receipt Date: 20180907
  Transmission Date: 20181010
  Serious: Yes (Hospitalization)
  Sender: FDA-Public Use
  Company Number: None

PATIENT
  Age: 48 Month
  Sex: Female

DRUGS (14)
  1. TURMERIC [Concomitant]
     Active Substance: HERBALS\TURMERIC
  2. OMEPRAZOLE. [Concomitant]
     Active Substance: OMEPRAZOLE
  3. RA CALCIUM [Concomitant]
  4. CALCIUM [Concomitant]
     Active Substance: CALCIUM
  5. MELOXICAM. [Concomitant]
     Active Substance: MELOXICAM
  6. TYLENOL [Concomitant]
     Active Substance: ACETAMINOPHEN
  7. FOLIC ACID. [Concomitant]
     Active Substance: FOLIC ACID
  8. PREDNISONE. [Concomitant]
     Active Substance: PREDNISONE
  9. METHOTREXATE. [Concomitant]
     Active Substance: METHOTREXATE
  10. FISH OIL [Concomitant]
     Active Substance: FISH OIL
  11. HYDROXYCHLO [Concomitant]
  12. MULTIVITS/FL [Concomitant]
  13. ENBREL [Suspect]
     Active Substance: ETANERCEPT
     Indication: RHEUMATOID ARTHRITIS
     Dosage: 1 INJECTION EVERY WEEK GIVEN INTO UNDER HIS SKIN
     Dates: start: 20150721
  14. ACETAMIN PM [Concomitant]

REACTIONS (4)
  - Drug dose omission [None]
  - Injection site pain [None]
  - Underdose [None]
  - Device leakage [None]
